FAERS Safety Report 13794936 (Version 1)
Quarter: 2017Q3

REPORT INFORMATION
  Report Type: Spontaneous
  Country: ES (occurrence: ES)
  Receive Date: 20170726
  Receipt Date: 20170726
  Transmission Date: 20171127
  Serious: Yes (Other)
  Sender: FDA-Public Use
  Company Number: ES-ACCORD-056166

PATIENT
  Age: 49 Year
  Sex: Female

DRUGS (1)
  1. QUETIAPINE. [Suspect]
     Active Substance: QUETIAPINE
     Indication: PSYCHIATRIC SYMPTOM

REACTIONS (5)
  - Extrapyramidal disorder [Unknown]
  - Micrographia [Unknown]
  - Musculoskeletal stiffness [Unknown]
  - Reduced facial expression [Unknown]
  - Parkinsonian gait [Unknown]
